FAERS Safety Report 6368710-7 (Version None)
Quarter: 2009Q3

REPORT INFORMATION
  Report Type: 
  Country: None (occurrence: None)
  Receive Date: 20090916
  Receipt Date: 20090901
  Transmission Date: 20100115
  Serious: Yes (Death)
  Sender: FDA-Public Use
  Company Number: POMP-1000713

PATIENT
  Age: 2 Year
  Sex: Female
  Weight: 10 kg

DRUGS (7)
  1. MYOZYME [Suspect]
     Indication: GLYCOGEN STORAGE DISEASE TYPE II
     Dosage: 200 MG, Q2W, INTRAVENOUS, 200 MG, Q2W, INTRAVENOUS, 40 MG/KG, Q2W, INTRAVENOUS
     Route: 042
     Dates: start: 20080701, end: 20081030
  2. MYOZYME [Suspect]
     Indication: GLYCOGEN STORAGE DISEASE TYPE II
     Dosage: 200 MG, Q2W, INTRAVENOUS, 200 MG, Q2W, INTRAVENOUS, 40 MG/KG, Q2W, INTRAVENOUS
     Route: 042
     Dates: start: 20090626, end: 20090801
  3. MYOZYME [Suspect]
     Indication: GLYCOGEN STORAGE DISEASE TYPE II
     Dosage: 200 MG, Q2W, INTRAVENOUS, 200 MG, Q2W, INTRAVENOUS, 40 MG/KG, Q2W, INTRAVENOUS
     Route: 042
     Dates: start: 20081031
  4. XOPENEX (LEVOSALBUTAMOL) INHALATION GAS [Concomitant]
  5. FLUCONAZOLE [Concomitant]
  6. FLOVENT (FLUTICASONE PROPIONATE) INHALATION GAS [Concomitant]
  7. AUGMENTIN (AMOXICILLIN SOEIUM, CLAVULANATE POTASSIUM) UNKNOWN [Concomitant]

REACTIONS (2)
  - CARDIO-RESPIRATORY ARREST [None]
  - UPPER RESPIRATORY TRACT INFECTION [None]
